FAERS Safety Report 6408792-7 (Version None)
Quarter: 2009Q4

REPORT INFORMATION
  Report Type: 
  Country: None (occurrence: None)
  Receive Date: 20091021
  Receipt Date: 20091013
  Transmission Date: 20100525
  Serious: Yes (Hospitalization)
  Sender: FDA-Public Use
  Company Number: A0812605A

PATIENT
  Age: 44 Year
  Sex: Male

DRUGS (2)
  1. AVANDIA [Suspect]
     Dosage: 8MG PER DAY
     Route: 065
  2. AVANDAMET [Suspect]
     Dosage: 8MG PER DAY
     Route: 065
     Dates: start: 20050209

REACTIONS (3)
  - BLINDNESS [None]
  - CHOLELITHIASIS [None]
  - GASTROINTESTINAL DISORDER [None]
